FAERS Safety Report 6035317-0 (Version None)
Quarter: 2009Q1

REPORT INFORMATION
  Report Type: 
  Country: None (occurrence: None)
  Receive Date: 20090108
  Receipt Date: 20081223
  Transmission Date: 20090719
  Serious: No
  Sender: FDA-Public Use
  Company Number: 128878

PATIENT
  Age: 66 Year
  Sex: Female
  Weight: 51.8 kg

DRUGS (5)
  1. CARBOPLATIN [Suspect]
     Indication: FALLOPIAN TUBE CANCER
     Dosage: 454 MG, OVER 30-60 MIN, INTRAVENOUS
     Route: 042
  2. DECADRON [Concomitant]
  3. ZOFRAN [Concomitant]
  4. ATIVAN [Concomitant]
  5. BENADRYL [Concomitant]

REACTIONS (8)
  - ABDOMINAL PAIN [None]
  - AGITATION [None]
  - BACK PAIN [None]
  - DIARRHOEA [None]
  - ERYTHEMA [None]
  - INFUSION RELATED REACTION [None]
  - NAUSEA [None]
  - VOMITING [None]
